FAERS Safety Report 4556101-0 (Version None)
Quarter: 2005Q1

REPORT INFORMATION
  Report Type: 
  Country: None (occurrence: None)
  Receive Date: 20050114
  Receipt Date: 20050103
  Transmission Date: 20050727
  Serious: Yes (Hospitalization)
  Sender: FDA-Public Use
  Company Number: 2005005000

PATIENT
  Age: 64 Year
  Sex: Female

DRUGS (1)
  1. EXEMESTANE (EXEMESTANE) [Suspect]
     Indication: LYMPHANGIOSIS CARCINOMATOSA
     Dosage: 25 MG, DAILY, ORAL
     Route: 048
     Dates: start: 20000101, end: 20050102

REACTIONS (1)
  - ANGIONEUROTIC OEDEMA [None]
